FAERS Safety Report 6220628-6 (Version None)
Quarter: 2009Q2

REPORT INFORMATION
  Report Type: 
  Country: None (occurrence: None)
  Receive Date: 20090610
  Receipt Date: 20090605
  Transmission Date: 20091009
  Serious: Yes (Hospitalization, Disabling)
  Sender: FDA-Public Use
  Company Number: US-ROCHE-401297

PATIENT
  Sex: Male

DRUGS (3)
  1. ACCUTANE [Suspect]
     Route: 048
     Dates: start: 19950518
  2. ACCUTANE [Suspect]
     Route: 048
     Dates: start: 19950601
  3. ACCUTANE [Suspect]
     Route: 048
     Dates: end: 19951215

REACTIONS (22)
  - ABDOMINAL PAIN [None]
  - ANAEMIA [None]
  - BLOOD ALBUMIN INCREASED [None]
  - BLOOD ALKALINE PHOSPHATASE INCREASED [None]
  - BLOOD BILIRUBIN INCREASED [None]
  - BLOOD CALCIUM INCREASED [None]
  - BLOOD THYROID STIMULATING HORMONE DECREASED [None]
  - COLITIS [None]
  - COLITIS ULCERATIVE [None]
  - CONSTIPATION [None]
  - DIARRHOEA HAEMORRHAGIC [None]
  - DRY EYE [None]
  - DRY SKIN [None]
  - GASTROINTESTINAL DISORDER [None]
  - HAEMATOCHEZIA [None]
  - INFLAMMATORY BOWEL DISEASE [None]
  - INTESTINAL HAEMORRHAGE [None]
  - MULTI-ORGAN DISORDER [None]
  - PLATELET COUNT INCREASED [None]
  - RECTAL HAEMORRHAGE [None]
  - RED BLOOD CELL SEDIMENTATION RATE INCREASED [None]
  - WEIGHT DECREASED [None]
